FAERS Safety Report 15811868 (Version 4)
Quarter: 2019Q1

REPORT INFORMATION
  Report Type: Report from Study
  Country: CN (occurrence: CN)
  Receive Date: 20190111
  Receipt Date: 20190305
  Transmission Date: 20190417
  Serious: Yes (Death, Other)
  Sender: FDA-Public Use
  Company Number: PHHY2019CN004645

PATIENT
  Sex: Male

DRUGS (3)
  1. EXJADE [Suspect]
     Active Substance: DEFERASIROX
     Indication: ACUTE LEUKAEMIA
     Dosage: 1120 MG, QD
     Route: 048
     Dates: start: 20180930, end: 20181226
  2. AZACITIDINE. [Concomitant]
     Active Substance: AZACITIDINE
     Indication: PRODUCT USED FOR UNKNOWN INDICATION
     Dosage: 100 MG, QD
     Route: 065
     Dates: start: 201811, end: 20181227
  3. CYTARABINE. [Concomitant]
     Active Substance: CYTARABINE
     Indication: PRODUCT USED FOR UNKNOWN INDICATION
     Dosage: 50 MG, QD
     Route: 065

REACTIONS (6)
  - Cardiac failure [Fatal]
  - Respiratory failure [Fatal]
  - Product use in unapproved indication [Unknown]
  - Hypokalaemia [Recovered/Resolved]
  - Atrial fibrillation [Fatal]
  - Ventricular fibrillation [Fatal]
